FAERS Safety Report 22006407 (Version 1)
Quarter: 2023Q1

REPORT INFORMATION
  Report Type: Report from Study
  Country: US (occurrence: None)
  Receive Date: 20230217
  Receipt Date: 20230217
  Transmission Date: 20230417
  Serious: Yes (Other)
  Sender: FDA-Public Use
  Company Number: 2023A037548

PATIENT
  Sex: Female

DRUGS (2)
  1. TAGRISSO [Suspect]
     Active Substance: OSIMERTINIB
     Indication: Lung carcinoma cell type unspecified stage I
     Route: 048
     Dates: start: 20230105, end: 20230210
  2. TAGRISSO [Suspect]
     Active Substance: OSIMERTINIB
     Indication: Lung carcinoma cell type unspecified stage I
     Route: 048

REACTIONS (2)
  - Toxicity to various agents [Unknown]
  - Underdose [Unknown]
